FAERS Safety Report 8478334-3 (Version None)
Quarter: 2012Q2

REPORT INFORMATION
  Report Type: 
  Country: None (occurrence: None)
  Receive Date: 20120629
  Receipt Date: 20120625
  Transmission Date: 20120825
  Serious: Yes (Death)
  Sender: FDA-Public Use
  Company Number: US-PFIZER INC-K200901223

PATIENT
  Sex: Male
  Weight: 99.32 kg

DRUGS (19)
  1. ALPRAZOLAM [Concomitant]
     Dosage: 0.5 MG, 3X/DAY
  2. ADVAIR DISKUS 100/50 [Concomitant]
     Dosage: ^50/500,^ BID
     Route: 055
  3. SEROQUEL [Concomitant]
     Dosage: 200 TO 400 MG, QHS
  4. LOMOTIL [Concomitant]
     Dosage: 2.5 MG, AS NEEDED
  5. EMBEDA [Suspect]
     Indication: BACK PAIN
     Dosage: 60 MG, 2X/DAY
     Route: 048
     Dates: start: 20090928
  6. LITHIUM [Concomitant]
     Dosage: UNK
     Dates: start: 20090925
  7. NEXIUM [Concomitant]
     Dosage: 40 MG, AS NEEDED
  8. ALBUTEROL [Concomitant]
     Dosage: 0.083 %, 4X/DAY
     Route: 055
  9. CYCLOBENZAPRINE HYDROCHLORIDE [Concomitant]
     Dosage: 10 MG, 3X/DAY
  10. AVINZA [Suspect]
     Dosage: 60 MG, 1X/DAY
     Route: 048
     Dates: start: 20090924, end: 20090927
  11. NEURONTIN [Concomitant]
     Dosage: 300 MG, 3X/DAY
     Route: 048
  12. CLARINEX [Concomitant]
     Indication: SEASONAL ALLERGY
     Dosage: 5 MG, 1X/DAY
  13. AVINZA [Suspect]
     Indication: BACK PAIN
     Dosage: 60 MG, 2X/DAY
     Route: 048
     Dates: start: 20090928
  14. CYMBALTA [Concomitant]
     Dosage: 30 MG, 1X/DAY
  15. OXYCODONE AND ACETAMINOPHEN [Concomitant]
     Dosage: 5/325 2 TABLETS, QID
  16. ALLEGRA-D 12 HOUR [Concomitant]
     Indication: SEASONAL ALLERGY
     Dosage: UNK
  17. BENZONATATE [Concomitant]
     Dosage: 200 MG, AS NEEDED
  18. IBUPROFEN [Concomitant]
     Indication: BACK PAIN
     Dosage: 800 MG, 3X/DAY
     Route: 048
  19. FLUTICASONE [Concomitant]
     Dosage: SPRAY, BID
     Route: 045

REACTIONS (3)
  - INTENTIONAL OVERDOSE [None]
  - COMPLETED SUICIDE [None]
  - ADVERSE DRUG REACTION [None]
